FAERS Safety Report 9856787 (Version 1)
Quarter: 2014Q1

REPORT INFORMATION
  Report Type: Spontaneous
  Country: US (occurrence: None)
  Receive Date: 20140128
  Receipt Date: 20140128
  Transmission Date: 20141002
  Serious: Yes (Death)
  Sender: FDA-Public Use
  Company Number: 2014AP000551

PATIENT
  Age: 64 Year
  Sex: Male

DRUGS (5)
  1. DILT-XR [Suspect]
     Route: 048
  2. PRAZOSIN [Suspect]
     Route: 048
  3. TEMAZEPAM [Suspect]
     Route: 048
  4. ETHANOL [Suspect]
  5. ACETAMINOPHEN [Suspect]
     Route: 048

REACTIONS (1)
  - Death [None]
